FAERS Safety Report 11276419 (Version 2)
Quarter: 2015Q3

REPORT INFORMATION
  Report Type: Spontaneous
  Country: US (occurrence: US)
  Receive Date: 20150716
  Receipt Date: 20150820
  Transmission Date: 20151125
  Serious: No
  Sender: FDA-Public Use
  Company Number: US-PFIZER INC-2015235302

PATIENT
  Age: 72 Year
  Sex: Female

DRUGS (2)
  1. XELJANZ [Suspect]
     Active Substance: TOFACITINIB CITRATE
     Indication: ARTHRALGIA
     Dosage: 5 MG, 2X/DAY
     Dates: start: 20150714
  2. METHOTREXATE [Suspect]
     Active Substance: METHOTREXATE
     Dosage: UNK, WEEKLY
     Dates: start: 2005

REACTIONS (2)
  - Arthralgia [Not Recovered/Not Resolved]
  - Back pain [Not Recovered/Not Resolved]

NARRATIVE: CASE EVENT DATE: 20150714
